FAERS Safety Report 26107109 (Version 1)
Quarter: 2025Q4

REPORT INFORMATION
  Report Type: Spontaneous
  Country: US (occurrence: US)
  Receive Date: 20251201
  Receipt Date: 20251201
  Transmission Date: 20260117
  Serious: Yes (Other)
  Sender: AMGEN
  Company Number: US-AMGEN-USASP2025235260

PATIENT

DRUGS (1)
  1. MVASI [Suspect]
     Active Substance: BEVACIZUMAB-AWWB
     Indication: Product used for unknown indication
     Dosage: UNK (ORDERED DOSE: 350 MILLIGRAM, REQUESTING FOR REPLACEMENT: (3) 100 MILLIGRAM VIALS)
     Route: 065

REACTIONS (2)
  - Failure to thrive [Unknown]
  - Disease progression [Unknown]
